FAERS Safety Report 4485934-4 (Version None)
Quarter: 2004Q4

REPORT INFORMATION
  Report Type: 
  Country: None (occurrence: None)
  Receive Date: 20041021
  Receipt Date: 20041018
  Transmission Date: 20050328
  Serious: Yes (Death)
  Sender: FDA-Public Use
  Company Number: HQWYE542005OCT04

PATIENT
  Age: 49 Year

DRUGS (3)
  1. METHOCARBAMOL [Suspect]
     Dosage: ORAL
     Route: 048
  2. GABAPENTIN [Suspect]
     Dosage: ORAL
     Route: 048
  3. METHADONE (METHADONE,) [Suspect]
     Dosage: ORAL
     Route: 048

REACTIONS (1)
  - INTENTIONAL OVERDOSE [None]
